FAERS Safety Report 4809265-5 (Version None)
Quarter: 2005Q4

REPORT INFORMATION
  Report Type: 
  Country: None (occurrence: None)
  Receive Date: 20051021
  Receipt Date: 20051011
  Transmission Date: 20060501
  Serious: Yes (Hospitalization)
  Sender: FDA-Public Use
  Company Number: GXKR2005ES01791

PATIENT
  Age: 63 Year
  Sex: Male

DRUGS (2)
  1. CEFTRIAXONE [Suspect]
     Indication: SUBACUTE ENDOCARDITIS
     Dosage: 2 G, QD, INTRAVENOUS
     Route: 042
  2. GENTAMICIN [Suspect]
     Indication: SUBACUTE ENDOCARDITIS
     Dosage: 300 MG, INTRAVENOUS
     Route: 042

REACTIONS (10)
  - BALANCE DISORDER [None]
  - BENIGN INTRACRANIAL HYPERTENSION [None]
  - CEREBELLAR SYNDROME [None]
  - DIPLOPIA [None]
  - DIZZINESS [None]
  - GAIT DISTURBANCE [None]
  - HEMIANOPIA [None]
  - PAPILLOEDEMA [None]
  - VISION BLURRED [None]
  - VITH NERVE PARALYSIS [None]
